FAERS Safety Report 22279858 (Version 1)
Quarter: 2023Q2

REPORT INFORMATION
  Report Type: Report from Study
  Country: US (occurrence: US)
  Receive Date: 20230503
  Receipt Date: 20230503
  Transmission Date: 20230721
  Serious: Yes (Hospitalization, Other)
  Sender: FDA-Public Use
  Company Number: US-BAUSCH-BL-2023-006759

PATIENT
  Age: 30 Year
  Sex: Male

DRUGS (1)
  1. XIFAXAN [Suspect]
     Active Substance: RIFAXIMIN
     Indication: Product used for unknown indication
     Route: 048

REACTIONS (3)
  - Post procedural complication [Unknown]
  - Liver transplant [Unknown]
  - Liver disorder [Unknown]

NARRATIVE: CASE EVENT DATE: 20230101
